FAERS Safety Report 5143454-8 (Version None)
Quarter: 2006Q4

REPORT INFORMATION
  Report Type: 
  Country: None (occurrence: None)
  Receive Date: 20061103
  Receipt Date: 20061026
  Transmission Date: 20070319
  Serious: Yes (Hospitalization, Other)
  Sender: FDA-Public Use
  Company Number: US-JNJFOC-20061001158

PATIENT
  Sex: Female

DRUGS (5)
  1. REMICADE [Suspect]
     Indication: CROHN'S DISEASE
     Route: 042
  2. REMICADE [Suspect]
     Indication: JUVENILE ARTHRITIS
     Route: 042
  3. 6-MP [Concomitant]
     Indication: CROHN'S DISEASE
     Dosage: TAKING FOR ^SEVERAL YEARS^
  4. PREVACID [Concomitant]
     Indication: GASTRITIS
     Dosage: TAKING FOR ^SEVERAL YEARS^
  5. DIPENTUM [Concomitant]
     Indication: CROHN'S DISEASE
     Dosage: TAKING FOR ^SEVERAL YEARS^

REACTIONS (3)
  - CONVULSION [None]
  - NERVOUS SYSTEM DISORDER [None]
  - VASCULITIS CEREBRAL [None]
